FAERS Safety Report 19996360 (Version 2)
Quarter: 2021Q4

REPORT INFORMATION
  Report Type: Spontaneous
  Country: US (occurrence: US)
  Receive Date: 20211026
  Receipt Date: 20211217
  Transmission Date: 20220303
  Serious: No
  Sender: FDA-Public Use
  Company Number: US-PFIZER INC-202101375523

PATIENT
  Age: 26 Year
  Sex: Female
  Weight: 58.97 kg

DRUGS (1)
  1. DEPO-PROVERA [Suspect]
     Active Substance: MEDROXYPROGESTERONE ACETATE
     Indication: Contraception
     Dosage: 104 MG; INJECTS THE FULL SYRINGE
     Route: 058
     Dates: start: 20210308

REACTIONS (4)
  - Drug dose omission by device [Unknown]
  - Product administration error [Unknown]
  - Needle issue [Unknown]
  - Syringe issue [Unknown]

NARRATIVE: CASE EVENT DATE: 20211011
